FAERS Safety Report 23560816 (Version 1)
Quarter: 2024Q1

REPORT INFORMATION
  Report Type: Spontaneous
  Country: US (occurrence: None)
  Receive Date: 20240223
  Receipt Date: 20240223
  Transmission Date: 20240409
  Serious: Yes (Disabling)
  Sender: FDA-Public Use
  Company Number: None

PATIENT
  Age: 72 Year
  Sex: Female
  Weight: 66.6 kg

DRUGS (21)
  1. ESZOPICLONE [Suspect]
     Active Substance: ESZOPICLONE
     Indication: Insomnia
     Dosage: 1 TABLET AT BEDTIME ORAL
     Route: 048
  2. ALPRAZOLAM [Concomitant]
     Active Substance: ALPRAZOLAM
  3. KLOR-CON [Concomitant]
     Active Substance: POTASSIUM CHLORIDE
  4. MEQ [Concomitant]
  5. Phenobarb-Hyo-Atrop-Scop Elix [Concomitant]
  6. SYNTHROID [Concomitant]
     Active Substance: LEVOTHYROXINE SODIUM
  7. ACETYLCARNITINE [Concomitant]
     Active Substance: ACETYLCARNITINE
  8. Ayr Hypertonic Saline Nasal Mist [Concomitant]
  9. CALCIUM [Concomitant]
     Active Substance: CALCIUM
  10. FLAXSEED [Concomitant]
     Active Substance: FLAX SEED
  11. Omega [Concomitant]
  12. Gen Teal Tears for dry eyes [Concomitant]
  13. CHONDROITIN SULFATE (BOVINE)\GLUCOSAMINE HYDROCHLORIDE [Concomitant]
     Active Substance: CHONDROITIN SULFATE (BOVINE)\GLUCOSAMINE HYDROCHLORIDE
  14. TYLENOL [Concomitant]
     Active Substance: ACETAMINOPHEN
  15. TYLENOL PM [Concomitant]
     Active Substance: ACETAMINOPHEN\DIPHENHYDRAMINE
  16. Vitamin A [Concomitant]
  17. VITAMIN B1 [Concomitant]
     Active Substance: THIAMINE HYDROCHLORIDE
  18. VITAMIN B6 [Concomitant]
     Active Substance: PYRIDOXINE HYDROCHLORIDE
  19. VITAMIN B12 [Concomitant]
     Active Substance: CYANOCOBALAMIN
  20. VITAMIN D3 [Concomitant]
     Active Substance: CHOLECALCIFEROL
  21. VITAMIN C [Concomitant]
     Active Substance: ASCORBIC ACID

REACTIONS (6)
  - Asthenia [None]
  - Fatigue [None]
  - Headache [None]
  - Dry mouth [None]
  - Weight decreased [None]
  - Somnolence [None]

NARRATIVE: CASE EVENT DATE: 20240213
